FAERS Safety Report 7786335-3 (Version None)
Quarter: 2011Q3

REPORT INFORMATION
  Report Type: 
  Country: None (occurrence: None)
  Receive Date: 20110929
  Receipt Date: 20110922
  Transmission Date: 20111222
  Serious: Yes (Hospitalization, Other)
  Sender: FDA-Public Use
  Company Number: PHHY2011US01326

PATIENT
  Sex: Female

DRUGS (12)
  1. TYSABRI [Suspect]
     Dosage: UNK UKN, ONCE IN A MONTH
  2. KLONOPIN [Concomitant]
     Dosage: 2 MG, UNK
  3. NUCYNTA [Suspect]
     Dosage: 100 MG, QID
  4. REBIF [Suspect]
     Dosage: UNK UKN, UNK
  5. ZOFRAN [Concomitant]
     Dosage: 8 MG, PRN
  6. ZANAFLEX [Concomitant]
     Dosage: 4 MG, PRN
  7. AVONEX [Suspect]
     Dosage: UNK UKN, QW
  8. TRAZODONE HYDROCHLORIDE [Concomitant]
     Dosage: 150 MG, PRN
  9. COPAXONE [Suspect]
     Dosage: UNK UKN, UNK
  10. TOPAMAX [Concomitant]
     Dosage: 200 MG, QD
  11. GILENYA [Suspect]
     Indication: MULTIPLE SCLEROSIS
     Dosage: 0.5 MG, QD
     Route: 048
     Dates: start: 20110104
  12. CITRO-MAG [Concomitant]
     Indication: NAUSEA
     Dosage: 1 MG, Q2-3 HRS

REACTIONS (16)
  - WEIGHT DECREASED [None]
  - AMNESIA [None]
  - DECREASED APPETITE [None]
  - FATIGUE [None]
  - MOVEMENT DISORDER [None]
  - MALAISE [None]
  - VOMITING [None]
  - RETCHING [None]
  - HYPERSOMNIA [None]
  - IMPAIRED GASTRIC EMPTYING [None]
  - DISTURBANCE IN ATTENTION [None]
  - CONTUSION [None]
  - NAUSEA [None]
  - PYREXIA [None]
  - DEHYDRATION [None]
  - THROAT TIGHTNESS [None]
